FAERS Safety Report 10607261 (Version 1)
Quarter: 2014Q4

REPORT INFORMATION
  Report Type: Spontaneous
  Country: US (occurrence: US)
  Receive Date: 20141125
  Receipt Date: 20141125
  Transmission Date: 20150529
  Serious: No
  Sender: FDA-Public Use
  Company Number: US-ELI_LILLY_AND_COMPANY-US201411009278

PATIENT
  Age: 93 Year
  Sex: Female

DRUGS (1)
  1. FORTEO [Suspect]
     Active Substance: TERIPARATIDE
     Indication: PRODUCT USED FOR UNKNOWN INDICATION
     Dosage: UNK, UNKNOWN
     Route: 065

REACTIONS (15)
  - Injection site bruising [Unknown]
  - Insomnia [Unknown]
  - Muscle spasms [Unknown]
  - Injection site erythema [Unknown]
  - Arthralgia [Unknown]
  - Myalgia [Unknown]
  - Bone pain [Unknown]
  - Injection site pain [Unknown]
  - Contusion [Unknown]
  - Nausea [Unknown]
  - Off label use [Unknown]
  - Injection site pruritus [Unknown]
  - Pain [Unknown]
  - Injection site swelling [Unknown]
  - Injection site haemorrhage [Unknown]
